FAERS Safety Report 6306678-X (Version None)
Quarter: 2009Q3

REPORT INFORMATION
  Report Type: 
  Country: None (occurrence: None)
  Receive Date: 20090811
  Receipt Date: 20090811
  Transmission Date: 20100115
  Serious: Yes (Hospitalization)
  Sender: FDA-Public Use
  Company Number: None

PATIENT
  Sex: Female
  Weight: 83.9 kg

DRUGS (1)
  1. TEMOZOLOMIDE [Suspect]
     Dosage: 2240 MG

REACTIONS (1)
  - HOSPITALISATION [None]
